FAERS Safety Report 14919548 (Version 1)
Quarter: 2018Q2

REPORT INFORMATION
  Report Type: Spontaneous
  Country: US (occurrence: US)
  Receive Date: 20180502
  Receipt Date: 20180502
  Transmission Date: 20180711
  Serious: Yes (Death, Other)
  Sender: FDA-Public Use
  Company Number: None

PATIENT
  Sex: Female

DRUGS (1)
  1. MESALAMINE 12 GM [Suspect]
     Active Substance: MESALAMINE
     Indication: PRODUCT USED FOR UNKNOWN INDICATION
     Dosage: ?          OTHER FREQUENCY:ONCE A DAY;?
     Route: 048
     Dates: start: 20180111, end: 20180416

REACTIONS (4)
  - Haematochezia [None]
  - Diarrhoea [None]
  - Condition aggravated [None]
  - Abdominal pain [None]
